FAERS Safety Report 8724046 (Version 2)
Quarter: 2012Q4

REPORT INFORMATION
  Report Type: 
  Country: IT (occurrence: IT)
  Receive Date: 20120815
  Receipt Date: 20120913
  Transmission Date: 20130627
  Serious: Yes (Hospitalization)
  Sender: FDA-Public Use
  Company Number: IT-ASTELLAS-2012US006875

PATIENT
  Age: 64 Year
  Sex: Male

DRUGS (2)
  1. TARCEVA [Suspect]
     Indication: LUNG CANCER METASTATIC
     Dosage: 150 mg, UID/QD
     Route: 048
     Dates: start: 20110510, end: 20120807
  2. TAXOTERE [Suspect]
     Indication: LUNG CANCER METASTATIC
     Dosage: 140 mg, daily, cyclic
     Route: 042
     Dates: start: 20120720, end: 20120720

REACTIONS (2)
  - Febrile neutropenia [Recovered/Resolved]
  - Pseudomonas infection [Recovered/Resolved]
